FAERS Safety Report 24341983 (Version 1)
Quarter: 2024Q3

REPORT INFORMATION
  Report Type: Spontaneous
  Country: TR (occurrence: TR)
  Receive Date: 20240920
  Receipt Date: 20240920
  Transmission Date: 20241017
  Serious: Yes (Hospitalization, Disabling)
  Sender: NOVO NORDISK
  Company Number: TR-NOVOPROD-1284243

PATIENT
  Sex: Male

DRUGS (9)
  1. RYZODEG 70/30 [Suspect]
     Active Substance: INSULIN ASPART\INSULIN DEGLUDEC
     Indication: Blood glucose abnormal
     Dosage: TWICE A DAY DEPENDING ON HIS BLOOD GLUCOSE LEVELS
  2. VEMLIDY [Concomitant]
     Active Substance: TENOFOVIR ALAFENAMIDE FUMARATE
     Indication: Hepatitis B
     Dosage: 25 MG, QD
  3. LEVETIRACETAM [Concomitant]
     Active Substance: LEVETIRACETAM
     Indication: Epilepsy
     Dosage: 750 MG, QD
  4. KARMA [Concomitant]
     Indication: Product used for unknown indication
     Dosage: 75 MG, QD
  5. STAGE [Concomitant]
     Indication: Blood cholesterol abnormal
     Dosage: 10 MG, QD
  6. JARDIANCE [Concomitant]
     Active Substance: EMPAGLIFLOZIN
     Indication: Blood glucose abnormal
     Dosage: 10 MG, QD
  7. ASPIRIN [Concomitant]
     Active Substance: ASPIRIN
     Indication: Cardiac disorder
     Dosage: 100 MG, QD
  8. VIDAPTIN MET [Concomitant]
     Indication: Blood glucose abnormal
     Dosage: 50 MG, BID
  9. RAMIPRIL [Concomitant]
     Active Substance: RAMIPRIL
     Indication: Hypertension
     Dosage: 2.5 MG, QD

REACTIONS (5)
  - Cardiac operation [Unknown]
  - Cerebrovascular accident [Unknown]
  - Disability [Unknown]
  - Asthenia [Unknown]
  - Visual impairment [Unknown]
